FAERS Safety Report 6297981-0 (Version None)
Quarter: 2009Q3

REPORT INFORMATION
  Report Type: 
  Country: None (occurrence: None)
  Receive Date: 20090805
  Receipt Date: 20090730
  Transmission Date: 20100115
  Serious: Yes (Death)
  Sender: FDA-Public Use
  Company Number: B0564891A

PATIENT
  Age: 82 Year
  Sex: Male
  Weight: 44 kg

DRUGS (14)
  1. PAXIL [Suspect]
     Indication: DEPRESSION
     Route: 048
     Dates: start: 20090117, end: 20090310
  2. SEREVENT [Suspect]
     Indication: EMPHYSEMA
     Dosage: 50MCG TWICE PER DAY
     Route: 055
     Dates: start: 20081204, end: 20090310
  3. DOGMATYL [Suspect]
     Indication: DEPRESSION
     Dosage: 50MG TWICE PER DAY
     Route: 048
     Dates: start: 20081224, end: 20090310
  4. FUROSEMIDE [Suspect]
     Dosage: 20MG PER DAY
     Route: 048
     Dates: end: 20090310
  5. UNIPHYL [Suspect]
     Indication: EMPHYSEMA
     Dosage: 200MG PER DAY
     Route: 048
  6. VASOLAN [Suspect]
     Indication: ARRHYTHMIA
     Dosage: 40MG THREE TIMES PER DAY
     Route: 065
     Dates: end: 20090310
  7. SPIRIVA [Suspect]
     Indication: EMPHYSEMA
     Dosage: 18MCG PER DAY
     Route: 055
     Dates: start: 20081204, end: 20090310
  8. DIGOXIN [Suspect]
     Indication: ATRIAL FIBRILLATION
     Dosage: .125MG PER DAY
     Route: 048
     Dates: start: 20081222, end: 20090310
  9. KLARICID [Suspect]
     Indication: ATRIAL FIBRILLATION
     Dosage: 200MG PER DAY
     Route: 048
     Dates: start: 20080327, end: 20090310
  10. ARTIST [Suspect]
     Indication: CARDIAC FAILURE CHRONIC
     Dosage: 1.25MG PER DAY
     Route: 048
     Dates: start: 20081225, end: 20090310
  11. DIAZEPAM [Suspect]
     Indication: NEURALGIA
     Route: 065
     Dates: start: 20081204, end: 20090310
  12. DANTROLENE SODIUM [Concomitant]
     Dosage: 60MG PER DAY
     Route: 042
     Dates: start: 20090310, end: 20090313
  13. WARFARIN SODIUM [Concomitant]
     Indication: ATRIAL FIBRILLATION
     Dosage: 1MG PER DAY
     Route: 048
     Dates: start: 20081119, end: 20090310
  14. SOLDEM-3 [Concomitant]
     Indication: HYPOPHAGIA
     Dosage: 500ML PER DAY
     Route: 042
     Dates: start: 20090118, end: 20090310

REACTIONS (9)
  - CONVULSION [None]
  - DISSEMINATED INTRAVASCULAR COAGULATION [None]
  - HYPERTHERMIA [None]
  - MULTI-ORGAN FAILURE [None]
  - MUSCULOSKELETAL STIFFNESS [None]
  - NEUROLEPTIC MALIGNANT SYNDROME [None]
  - PYREXIA [None]
  - TACHYCARDIA [None]
  - TONIC CONVULSION [None]
